FAERS Safety Report 4527955-9 (Version None)
Quarter: 2004Q4

REPORT INFORMATION
  Report Type: 
  Country: None (occurrence: None)
  Receive Date: 20041123
  Receipt Date: 20031226
  Transmission Date: 20050328
  Serious: Yes (Other)
  Sender: FDA-Public Use
  Company Number: 2003120519

PATIENT
  Age: 59 Year
  Sex: Female

DRUGS (5)
  1. LIPITOR [Suspect]
     Indication: BLOOD TRIGLYCERIDES INCREASED
     Dosage: 20 MG (DAILY)
     Dates: start: 19980420, end: 20030714
  2. EZETIMIBE (EZETIMIBE) [Suspect]
     Indication: LOW DENSITY LIPOPROTEIN INCREASED
     Dosage: 10 MG (DAILY), ORAL
     Route: 048
     Dates: start: 20030703, end: 20030714
  3. AMLODIPINE BESYLATE [Concomitant]
  4. METOPROLOL SUCCINATE [Concomitant]
  5. DYAZIDE [Concomitant]

REACTIONS (6)
  - ANTINUCLEAR ANTIBODY POSITIVE [None]
  - ASTHENIA [None]
  - BLOOD CREATINE PHOSPHOKINASE INCREASED [None]
  - MYALGIA [None]
  - POLYMYOSITIS [None]
  - RHABDOMYOLYSIS [None]
